FAERS Safety Report 21120845 (Version 1)
Quarter: 2022Q3

REPORT INFORMATION
  Report Type: Spontaneous
  Country: PR (occurrence: None)
  Receive Date: 20220722
  Receipt Date: 20220722
  Transmission Date: 20221027
  Serious: Yes (Other)
  Sender: FDA-Public Use
  Company Number: None

PATIENT
  Age: 51 Year
  Sex: Female
  Weight: 82.8 kg

DRUGS (1)
  1. ENBREL [Suspect]
     Active Substance: ETANERCEPT
     Indication: Psoriatic arthropathy
     Dosage: OTHER FREQUENCY : WEEKLY;?
     Route: 058

REACTIONS (4)
  - Headache [None]
  - Pyrexia [None]
  - Swelling [None]
  - Fatigue [None]

NARRATIVE: CASE EVENT DATE: 20220630
